FAERS Safety Report 16370281 (Version 1)
Quarter: 2019Q2

REPORT INFORMATION
  Report Type: Spontaneous
  Country: US (occurrence: US)
  Receive Date: 20190530
  Receipt Date: 20190530
  Transmission Date: 20190711
  Serious: Yes (Other)
  Sender: FDA-Public Use
  Company Number: US-HIKMA PHARMACEUTICALS USA INC.-US-H14001-19-03566

PATIENT
  Age: 77 Year
  Sex: Female

DRUGS (1)
  1. DIGOXIN. [Suspect]
     Active Substance: DIGOXIN
     Indication: CARDIAC FAILURE
     Route: 065

REACTIONS (10)
  - Fall [Unknown]
  - Toxicity to various agents [Unknown]
  - Vomiting [Unknown]
  - Acute kidney injury [Unknown]
  - Musculoskeletal chest pain [Unknown]
  - Nausea [Unknown]
  - Asthenia [Unknown]
  - Bradycardia [Unknown]
  - Rib fracture [Unknown]
  - Cardioactive drug level increased [Unknown]
